FAERS Safety Report 11660530 (Version 1)
Quarter: 2015Q4

REPORT INFORMATION
  Report Type: Spontaneous
  Country: US (occurrence: US)
  Receive Date: 20151026
  Receipt Date: 20151026
  Transmission Date: 20160304
  Serious: No
  Sender: FDA-Public Use
  Company Number: US-ASTRAZENECA-2015SE99008

PATIENT
  Sex: Female
  Weight: 68 kg

DRUGS (8)
  1. SEROQUEL [Suspect]
     Active Substance: QUETIAPINE FUMARATE
     Indication: DEPRESSION
     Route: 048
     Dates: start: 2010, end: 201410
  2. GENERIC FOR LIBRIUM [Concomitant]
     Indication: DEPRESSION
     Route: 048
     Dates: start: 2010
  3. SEROQUEL [Suspect]
     Active Substance: QUETIAPINE FUMARATE
     Indication: DEPRESSION
     Route: 048
     Dates: start: 201510
  4. SEROQUEL [Suspect]
     Active Substance: QUETIAPINE FUMARATE
     Indication: DEPRESSION
     Dosage: QUETIAPINE FUMARATE 100 MG; TWICE
     Route: 048
     Dates: start: 201410
  5. SEROQUEL [Suspect]
     Active Substance: QUETIAPINE FUMARATE
     Indication: DEPRESSION
     Route: 048
     Dates: start: 201510
  6. CYMBALTA [Concomitant]
     Active Substance: DULOXETINE HYDROCHLORIDE
     Indication: DEPRESSION
     Route: 048
     Dates: start: 2010
  7. SEROQUEL [Suspect]
     Active Substance: QUETIAPINE FUMARATE
     Indication: DEPRESSION
     Route: 048
     Dates: start: 2010, end: 201410
  8. SEROQUEL [Suspect]
     Active Substance: QUETIAPINE FUMARATE
     Indication: DEPRESSION
     Dosage: QUETIAPINE FUMARATE 100 MG; TWICE
     Route: 048
     Dates: start: 201410

REACTIONS (7)
  - Increased appetite [Unknown]
  - Product use issue [Unknown]
  - Drug ineffective for unapproved indication [Unknown]
  - Adverse event [Unknown]
  - Somnolence [Unknown]
  - Weight increased [Unknown]
  - Off label use [Unknown]
